FAERS Safety Report 5254858-7 (Version None)
Quarter: 2007Q1

REPORT INFORMATION
  Report Type: 
  Country: None (occurrence: None)
  Receive Date: 20070305
  Receipt Date: 20070220
  Transmission Date: 20070707
  Serious: Yes (Hospitalization, Other)
  Sender: FDA-Public Use
  Company Number: B035271

PATIENT
  Age: 46 Year
  Sex: Male

DRUGS (34)
  1. ZERIT [Suspect]
     Indication: HIV INFECTION CDC GROUP IV SUBGROUP C1
     Route: 048
     Dates: start: 19970804, end: 20060510
  2. EPIVIR [Suspect]
     Indication: HIV INFECTION CDC GROUP IV SUBGROUP C1
     Dosage: RESTARTED ON 16-FEB-2004 TO 10-MAY-2006.
     Route: 048
     Dates: start: 19970331, end: 20000217
  3. CRIXIVAN [Suspect]
     Indication: HIV INFECTION CDC GROUP IV SUBGROUP C1
     Route: 048
     Dates: start: 19970804, end: 19970918
  4. CRIXIVAN [Suspect]
     Route: 048
     Dates: start: 19970921, end: 19990128
  5. STADOL [Concomitant]
     Dosage: THERAPY DATES: 21-AUG-1997, 23-AUG-1997 AND 11-SEPT-1997.
     Route: 030
     Dates: start: 19970821
  6. PROCHLORPERAZINE [Concomitant]
     Route: 048
     Dates: start: 19970808
  7. VOLTAREN [Concomitant]
     Route: 054
     Dates: start: 19970814, end: 19971127
  8. BUPRENORPHINE HCL [Concomitant]
     Route: 054
     Dates: start: 19970828, end: 19970901
  9. MAGNESIUM SULFATE [Concomitant]
     Route: 048
     Dates: start: 19970808
  10. VITAMINS [Concomitant]
     Route: 048
  11. ZOVIRAX [Concomitant]
     Dosage: 1.6 G 12/2/97-8/10/97, 600 MG 8/11/97-11/12/97, 2.2 MG 11/13/97-2/4/98.
     Route: 048
     Dates: start: 19961202, end: 19980204
  12. DIFLUCAN [Concomitant]
     Route: 048
     Dates: start: 19960930, end: 19971112
  13. BAKTAR [Concomitant]
     Route: 048
     Dates: start: 19960520, end: 19991227
  14. VIDEX [Concomitant]
     Route: 048
     Dates: start: 19960706, end: 19970330
  15. FUNGIZONE [Concomitant]
     Route: 048
     Dates: start: 19960622, end: 19961201
  16. RETROVIR [Concomitant]
     Route: 048
     Dates: start: 19950301, end: 19950430
  17. HIVID [Concomitant]
     Route: 048
     Dates: start: 19970331, end: 19970803
  18. SOLITA-T NO. 3 [Concomitant]
     Dates: start: 19970823, end: 19970905
  19. BUSCOPAN [Concomitant]
     Route: 048
     Dates: start: 19970912, end: 19971010
  20. FOLIC ACID [Concomitant]
     Route: 048
     Dates: start: 19980403, end: 19991227
  21. RESPLEN [Concomitant]
     Route: 048
     Dates: start: 19980903, end: 19980907
  22. CLARITHROMYCIN [Concomitant]
     Route: 048
     Dates: start: 19980903, end: 19980907
  23. VIRACEPT [Concomitant]
     Indication: HIV INFECTION CDC GROUP IV SUBGROUP C1
     Route: 048
     Dates: start: 19990129, end: 20000217
  24. INVIRASE [Concomitant]
     Indication: HIV INFECTION CDC GROUP IV SUBGROUP C1
     Route: 048
     Dates: start: 20000218, end: 20000331
  25. NORVIR [Concomitant]
     Indication: HIV INFECTION CDC GROUP IV SUBGROUP C1
     Dosage: 400 MG: 2/18/00-2/19/00, 600 MG: 2/20/00-2/22/00, 800 MG: 2/23/00-3/31/00.
     Route: 048
     Dates: start: 20000218
  26. ZIAGEN [Concomitant]
     Route: 048
     Dates: start: 20000218, end: 20040216
  27. NEUROTROPIN [Concomitant]
     Dosage: THERAPY DATES: 05-SEP-1997, 10-SEP-1997, 17-SEP-1997, 24-SEP-1997, 08-OCT-1997, 23-OCT-1997.
     Route: 014
     Dates: start: 19970905
  28. HYALURONIC ACID [Concomitant]
     Dosage: GIVEN ON 8/17/97 AND 8/27/97.
     Route: 048
     Dates: start: 19970818, end: 19970827
  29. BENDROFLUAZIDE [Concomitant]
     Indication: ASCITES
     Dates: start: 20000530
  30. CO-DYDRAMOL [Concomitant]
     Indication: ABDOMINAL PAIN
     Dates: start: 20000530
  31. STOCRIN [Concomitant]
     Route: 048
     Dates: start: 20001101, end: 20040131
  32. XYLOCAINE [Concomitant]
     Dosage: THERAPY:18-AUG-1997,27-AUG-1997,05-SEP-1997,10-SEP-1997,17-SEP-1997,24-SEP-1997,08OCT1997,23OCT1997.
     Route: 014
     Dates: start: 19970818
  33. AMICALIQ [Concomitant]
     Dates: start: 19970815, end: 19970819
  34. VIRAMUNE [Concomitant]
     Route: 048
     Dates: start: 20040216, end: 20060510

REACTIONS (16)
  - ABASIA [None]
  - ABDOMINAL PAIN [None]
  - ANOREXIA [None]
  - BACK PAIN [None]
  - DECREASED APPETITE [None]
  - DIARRHOEA [None]
  - FATIGUE [None]
  - HYPOAESTHESIA [None]
  - LIPOATROPHY [None]
  - LYMPHADENOPATHY [None]
  - MALAISE [None]
  - MUSCULAR WEAKNESS [None]
  - MUSCULOSKELETAL PAIN [None]
  - NAUSEA [None]
  - RENAL IMPAIRMENT [None]
  - VOMITING [None]
